FAERS Safety Report 24442053 (Version 2)
Quarter: 2024Q4

REPORT INFORMATION
  Report Type: Report from Study
  Country: US (occurrence: US)
  Receive Date: 20241016
  Receipt Date: 20241017
  Transmission Date: 20250115
  Serious: No
  Sender: ROCHE
  Company Number: US-ROCHE-3517972

PATIENT
  Age: 41 Year
  Sex: Male

DRUGS (2)
  1. HEMLIBRA [Suspect]
     Active Substance: EMICIZUMAB-KXWH
     Indication: Factor VIII deficiency
     Dosage: INJECT 135MG (1.7ML) SUBCUTANEOUSLY EVERY 7 DAY(S) . DRAW THE 30MG VIAL INTO ITS OWN SYRINGE.
     Route: 058
  2. HEMLIBRA [Suspect]
     Active Substance: EMICIZUMAB-KXWH
     Dosage: INJECT 135MG (1.7ML) SUBCUTANEOUSLY EVERY 7 DAY(S) . DRAW THE 30MG VIAL INTO ITS OWN SYRINGE.
     Route: 058

REACTIONS (2)
  - Circumstance or information capable of leading to medication error [Unknown]
  - No adverse event [Unknown]
